FAERS Safety Report 14899849 (Version 1)
Quarter: 2018Q2

REPORT INFORMATION
  Report Type: Spontaneous
  Country: US (occurrence: US)
  Receive Date: 20180516
  Receipt Date: 20180516
  Transmission Date: 20180711
  Serious: Yes (Other)
  Sender: FDA-Public Use
  Company Number: US-AMGEN-USASP2018065120

PATIENT
  Sex: Female

DRUGS (4)
  1. HUMIRA [Suspect]
     Active Substance: ADALIMUMAB
     Dosage: UNK
     Route: 065
  2. HUMIRA [Suspect]
     Active Substance: ADALIMUMAB
     Indication: PRODUCT USED FOR UNKNOWN INDICATION
     Dosage: UNK
     Route: 065
  3. ENBREL [Suspect]
     Active Substance: ETANERCEPT
     Indication: PRODUCT USED FOR UNKNOWN INDICATION
     Dosage: UNK
     Route: 065
  4. KEVZARA [Concomitant]
     Active Substance: SARILUMAB
     Dosage: UNK

REACTIONS (7)
  - Drug ineffective [Unknown]
  - Spinal operation [Unknown]
  - Surgery [Unknown]
  - General physical health deterioration [Unknown]
  - Joint dislocation [Unknown]
  - Mobility decreased [Recovering/Resolving]
  - Gait disturbance [Recovered/Resolved]
